FAERS Safety Report 22072939 (Version 1)
Quarter: 2023Q1

REPORT INFORMATION
  Report Type: Spontaneous
  Country: CN (occurrence: CN)
  Receive Date: 20230308
  Receipt Date: 20230308
  Transmission Date: 20230418
  Serious: Yes (Hospitalization)
  Sender: FDA-Public Use
  Company Number: CN-SANOFI-01509850

PATIENT

DRUGS (1)
  1. RENVELA [Suspect]
     Active Substance: SEVELAMER CARBONATE
     Indication: Dialysis
     Dosage: 30 TABLETS/BOTTLE, ONE BOTTLE OF MEDICINE WAS TAKEN FOR FIVE DAYS
     Route: 048

REACTIONS (1)
  - COVID-19 [Unknown]
